FAERS Safety Report 8437690-2 (Version None)
Quarter: 2012Q2

REPORT INFORMATION
  Report Type: 
  Country: None (occurrence: None)
  Receive Date: 20120614
  Receipt Date: 20120507
  Transmission Date: 20120825
  Serious: No
  Sender: FDA-Public Use
  Company Number: US-AMGEN-USASP2012024855

PATIENT
  Age: 58 Year
  Sex: Female
  Weight: 62.132 kg

DRUGS (5)
  1. SYNTHROID [Concomitant]
     Indication: HYPOTHYROIDISM
     Dosage: 75 MG, QD
     Route: 048
  2. PROLIA [Suspect]
     Indication: OSTEOPOROSIS POSTMENOPAUSAL
     Dosage: 60 MG, Q6MO
     Route: 058
     Dates: start: 20120228
  3. VIVELLE-DOT [Concomitant]
     Indication: MENOPAUSE
     Dosage: UNK UNK, 2 TIMES/WK
     Route: 061
  4. CYTOMEL [Concomitant]
     Indication: HYPOTHYROIDISM
     Dosage: 5 IU, QD
     Route: 048
  5. DRISDOL [Concomitant]
     Indication: VITAMIN D DEFICIENCY
     Dosage: UNK, QD
     Route: 048

REACTIONS (3)
  - SKIN INFECTION [None]
  - BLOOD THYROID STIMULATING HORMONE DECREASED [None]
  - RASH [None]
